FAERS Safety Report 9819007 (Version 1)
Quarter: 2014Q1

REPORT INFORMATION
  Report Type: Spontaneous
  Country: US (occurrence: US)
  Receive Date: 20140115
  Receipt Date: 20140115
  Transmission Date: 20141002
  Serious: No
  Sender: FDA-Public Use
  Company Number: US-ENDO PHARMACEUTICALS INC.-OXAC20130001

PATIENT
  Sex: Male

DRUGS (4)
  1. OXYCODONE/ACETAMINOPHEN 10MG/325MG [Suspect]
     Indication: PAIN
     Dosage: 10/325 MG
     Route: 048
  2. PERCOCET [Concomitant]
     Indication: PAIN
     Dosage: UNKNOWN
     Route: 048
     Dates: start: 2002
  3. PERCOCET [Concomitant]
     Dosage: 10/325 MG
     Route: 048
  4. PERCOCET [Concomitant]
     Dosage: 10/325 MG
     Route: 048

REACTIONS (3)
  - Nausea [Recovered/Resolved]
  - Abdominal discomfort [Recovered/Resolved]
  - Reaction to drug excipients [Recovered/Resolved]
